FAERS Safety Report 4390816-2 (Version None)
Quarter: 2004Q3

REPORT INFORMATION
  Report Type: 
  Country: None (occurrence: None)
  Receive Date: 20040707
  Receipt Date: 20040629
  Transmission Date: 20050211
  Serious: Yes (Hospitalization)
  Sender: FDA-Public Use
  Company Number: 200414911US

PATIENT
  Sex: Female

DRUGS (3)
  1. TAXOTERE [Suspect]
     Indication: BREAST CANCER
     Dates: start: 20040421, end: 20040603
  2. ADRIAMYCIN PFS [Concomitant]
     Indication: BREAST CANCER
     Dosage: DOSE: 4 CYCLES
  3. CYCLOPHOSPHAMIDE [Concomitant]
     Indication: BREAST CANCER
     Dosage: DOSE: 4 CYCLES

REACTIONS (3)
  - FEELING ABNORMAL [None]
  - NAUSEA [None]
  - VERTIGO [None]
